FAERS Safety Report 5113755-8 (Version None)
Quarter: 2006Q3

REPORT INFORMATION
  Report Type: 
  Country: None (occurrence: None)
  Receive Date: 20060921
  Receipt Date: 20060921
  Transmission Date: 20061208
  Serious: Yes (Hospitalization)
  Sender: FDA-Public Use
  Company Number: None

PATIENT
  Sex: Female
  Weight: 47.1741 kg

DRUGS (5)
  1. AMICAR [Suspect]
     Indication: HAEMORRHAGE
     Dosage: 6TSP BID PO (7.5 GM) [YEARS]
     Route: 048
  2. APAP TAB [Concomitant]
  3. CALCIUM CARBONATE [Concomitant]
  4. LANSOPRAZOLE [Concomitant]
  5. TEMAZEPAM [Concomitant]

REACTIONS (8)
  - DIZZINESS [None]
  - FALL [None]
  - GASTROINTESTINAL HAEMORRHAGE [None]
  - HAEMORRHAGE [None]
  - HEAD INJURY [None]
  - INCORRECT DOSE ADMINISTERED [None]
  - NAUSEA [None]
  - SYNCOPE [None]
